FAERS Safety Report 5470532-6 (Version None)
Quarter: 2007Q3

REPORT INFORMATION
  Report Type: 
  Country: None (occurrence: None)
  Receive Date: 20070927
  Receipt Date: 20070927
  Transmission Date: 20080115
  Serious: Yes (Hospitalization, Other)
  Sender: FDA-Public Use
  Company Number: None

PATIENT
  Age: 49 Year
  Sex: Female
  Weight: 61.2356 kg

DRUGS (2)
  1. DURAGESIC-75 [Suspect]
     Indication: BACK PAIN
     Dosage: 75 MCG/H EVERY 48 HOURS TOP
     Route: 061
     Dates: start: 20010101, end: 20070926
  2. DURAGESIC-75 [Suspect]
     Indication: RHEUMATOID ARTHRITIS
     Dosage: 75 MCG/H EVERY 48 HOURS TOP
     Route: 061
     Dates: start: 20010101, end: 20070926

REACTIONS (6)
  - CONVULSION [None]
  - DRUG TOLERANCE [None]
  - DRUG TOXICITY [None]
  - LOSS OF CONSCIOUSNESS [None]
  - OVERDOSE [None]
  - PHARMACEUTICAL PRODUCT COMPLAINT [None]
